FAERS Safety Report 5937818-X (Version None)
Quarter: 2008Q4

REPORT INFORMATION
  Report Type: 
  Country: None (occurrence: None)
  Receive Date: 20081031
  Receipt Date: 20081021
  Transmission Date: 20090506
  Serious: Yes (Death)
  Sender: FDA-Public Use
  Company Number: IE-ROCHE-593111

PATIENT
  Age: 70 Year
  Sex: Female

DRUGS (1)
  1. MIRCERA [Suspect]
     Dosage: STRENGTH: 50 MCG FORTNIGHTLY
     Route: 058
     Dates: start: 20080901

REACTIONS (1)
  - CEREBROVASCULAR ACCIDENT [None]
